FAERS Safety Report 7715553-5 (Version None)
Quarter: 2011Q3

REPORT INFORMATION
  Report Type: 
  Country: None (occurrence: None)
  Receive Date: 20110822
  Receipt Date: 20110806
  Transmission Date: 20111222
  Serious: Yes (Other)
  Sender: FDA-Public Use
  Company Number: IPC201108-003125

PATIENT
  Age: 35 Year
  Sex: Female

DRUGS (3)
  1. MULTI-VITAMINS [Concomitant]
  2. ALDOMET [Suspect]
     Indication: HYPERTENSION
  3. ALLOPURINOL [Suspect]
     Indication: NEPHROLITHIASIS
     Dosage: 300MG/DAY

REACTIONS (3)
  - MATERNAL EXPOSURE DURING PREGNANCY [None]
  - ANTEPARTUM HAEMORRHAGE [None]
  - CAESAREAN SECTION [None]
